FAERS Safety Report 9638261 (Version 4)
Quarter: 2014Q1

REPORT INFORMATION
  Report Type: Spontaneous
  Country: US (occurrence: US)
  Receive Date: 20131022
  Receipt Date: 20140307
  Transmission Date: 20141002
  Serious: No
  Sender: FDA-Public Use
  Company Number: US-PFIZER INC-2013300800

PATIENT
  Age: 65 Year
  Sex: Male

DRUGS (7)
  1. SUTENT [Suspect]
     Indication: RENAL CANCER
     Dosage: 50 MG, CYCLIC (DAILY X 4 WEEKS ON, OFF 2 WEEKS)
     Route: 048
     Dates: start: 20110420
  2. SUTENT [Suspect]
     Dosage: 50 MG, 1X/DAY (ONCE DAILY)
     Route: 048
     Dates: start: 20110422
  3. MONTELUKAST [Concomitant]
  4. PREVACID [Concomitant]
  5. GLUCOSAMINE [Concomitant]
  6. AMOXICILLIN [Concomitant]
     Dosage: UNK
  7. LOVENOX [Concomitant]

REACTIONS (3)
  - Rash erythematous [Unknown]
  - Constipation [Recovered/Resolved]
  - Diarrhoea [Unknown]
